FAERS Safety Report 13546681 (Version 1)
Quarter: 2017Q2

REPORT INFORMATION
  Report Type: Spontaneous
  Country: TR (occurrence: TR)
  Receive Date: 20170515
  Receipt Date: 20170515
  Transmission Date: 20170830
  Serious: No
  Sender: FDA-Public Use
  Company Number: TR-ELI_LILLY_AND_COMPANY-TR201705001819

PATIENT
  Age: 40 Year
  Sex: Male

DRUGS (2)
  1. CIALIS [Suspect]
     Active Substance: TADALAFIL
     Indication: ERECTILE DYSFUNCTION
     Dosage: 5 MG, UNKNOWN
     Route: 065
  2. CIALIS [Suspect]
     Active Substance: TADALAFIL
     Dosage: 2.5 MG, UNKNOWN
     Route: 065

REACTIONS (7)
  - Arthralgia [Recovering/Resolving]
  - Asthenia [Unknown]
  - Intentional product misuse [Unknown]
  - Xerophthalmia [Unknown]
  - Eyelid oedema [Unknown]
  - Dyspepsia [Unknown]
  - Myalgia [Recovering/Resolving]
